FAERS Safety Report 6220442-1 (Version None)
Quarter: 2009Q2

REPORT INFORMATION
  Report Type: 
  Country: None (occurrence: None)
  Receive Date: 20090610
  Receipt Date: 20090602
  Transmission Date: 20091009
  Serious: Yes (Other)
  Sender: FDA-Public Use
  Company Number: BR-BAXTER-2009BH009488

PATIENT
  Age: 20 Year
  Sex: Male

DRUGS (4)
  1. BEBULIN VH IMMUNO [Suspect]
     Indication: FACTOR VIII DEFICIENCY
     Route: 065
  2. KRYOBULIN, UNSPECIFIED [Suspect]
     Indication: FACTOR VIII DEFICIENCY
     Route: 065
  3. BEBULIN (STIM2 OR STIM3) [Suspect]
     Indication: FACTOR VIII DEFICIENCY
     Route: 065
  4. CRYOSUPERNATE [Suspect]
     Indication: FACTOR VIII DEFICIENCY
     Route: 065

REACTIONS (2)
  - HEPATITIS C [None]
  - HIV INFECTION [None]
